FAERS Safety Report 5639960-X (Version None)
Quarter: 2008Q1

REPORT INFORMATION
  Report Type: 
  Country: None (occurrence: None)
  Receive Date: 20080225
  Receipt Date: 20080211
  Transmission Date: 20080703
  Serious: Yes (Other)
  Sender: FDA-Public Use
  Company Number: 2007BI023797

PATIENT
  Age: 50 Year
  Sex: Female
  Weight: 68 kg

DRUGS (3)
  1. TYSABRI [Suspect]
     Indication: MULTIPLE SCLEROSIS
     Dosage: 300 MG; QM; IV
     Route: 042
     Dates: start: 20070703, end: 20070926
  2. ACETAMINOPHEN [Concomitant]
  3. AMOXICILLIN [Concomitant]

REACTIONS (11)
  - ALANINE AMINOTRANSFERASE INCREASED [None]
  - ASPARTATE AMINOTRANSFERASE INCREASED [None]
  - AUTOIMMUNE THYROIDITIS [None]
  - BLOOD BILIRUBIN INCREASED [None]
  - DYSPHAGIA [None]
  - GAMMA-GLUTAMYLTRANSFERASE INCREASED [None]
  - GOITRE [None]
  - HEADACHE [None]
  - MUSCLE TIGHTNESS [None]
  - TOOTH INFECTION [None]
  - ULTRASOUND LIVER ABNORMAL [None]
